FAERS Safety Report 8050718-7 (Version None)
Quarter: 2012Q1

REPORT INFORMATION
  Report Type: 
  Country: None (occurrence: None)
  Receive Date: 20120117
  Receipt Date: 20120117
  Transmission Date: 20120608
  Serious: Yes (Other)
  Sender: FDA-Public Use
  Company Number: None

PATIENT
  Age: 48 Year
  Sex: Female
  Weight: 105.23 kg

DRUGS (1)
  1. LISINOPRIL [Suspect]

REACTIONS (7)
  - PAIN [None]
  - DYSPNOEA [None]
  - ANGIOEDEMA [None]
  - GINGIVAL SWELLING [None]
  - HEADACHE [None]
  - FALL [None]
  - APPARENT DEATH [None]
